FAERS Safety Report 17098370 (Version 1)
Quarter: 2019Q4

REPORT INFORMATION
  Report Type: Spontaneous
  Country: US (occurrence: US)
  Receive Date: 20191202
  Receipt Date: 20191202
  Transmission Date: 20200122
  Serious: No
  Sender: FDA-Public Use
  Company Number: US-MYLANLABS-2019M1111400

PATIENT
  Sex: Female

DRUGS (1)
  1. ALPRAZOLAM TABLETS, USP [Suspect]
     Active Substance: ALPRAZOLAM
     Indication: CHRONIC OBSTRUCTIVE PULMONARY DISEASE
     Dosage: 4 TIMES A DAY
     Route: 048

REACTIONS (4)
  - Malaise [Not Recovered/Not Resolved]
  - Paranoia [Not Recovered/Not Resolved]
  - Dyspnoea [Not Recovered/Not Resolved]
  - Off label use [Not Recovered/Not Resolved]
